FAERS Safety Report 15468880 (Version 1)
Quarter: 2018Q4

REPORT INFORMATION
  Report Type: Spontaneous
  Country: US (occurrence: US)
  Receive Date: 20181005
  Receipt Date: 20181005
  Transmission Date: 20190205
  Serious: Yes (Hospitalization)
  Sender: FDA-Public Use
  Company Number: US-SA-2018SA274387

PATIENT
  Age: 38 Year
  Sex: Male

DRUGS (1)
  1. LEMTRADA [Suspect]
     Active Substance: ALEMTUZUMAB
     Dosage: 12 MG, (YEARLY INFUSION)
     Route: 041
     Dates: start: 20171113, end: 20171117

REACTIONS (2)
  - Pulmonary embolism [Recovering/Resolving]
  - Cardiac arrest [Recovering/Resolving]
